FAERS Safety Report 5338337-4 (Version None)
Quarter: 2007Q2

REPORT INFORMATION
  Report Type: 
  Country: None (occurrence: None)
  Receive Date: 20070530
  Receipt Date: 20070516
  Transmission Date: 20071010
  Serious: Yes (Other)
  Sender: FDA-Public Use
  Company Number: CA-ELI_LILLY_AND_COMPANY-CA200705004833

PATIENT
  Age: 50 Year
  Sex: Female

DRUGS (8)
  1. FORTEO [Suspect]
     Indication: OSTEOPOROSIS
     Dosage: 20 UG, DAILY (1/D)
     Route: 058
     Dates: start: 20060421
  2. ALTACE [Concomitant]
  3. CALCIUM CHLORIDE [Concomitant]
  4. VITAMIN D [Concomitant]
  5. MULTI-VITAMIN [Concomitant]
  6. RED CLOVER [Concomitant]
  7. TRAMACET [Concomitant]
  8. AMITRIPTYLINE HCL [Concomitant]

REACTIONS (3)
  - COUGH [None]
  - RIB FRACTURE [None]
  - SNEEZING [None]
